FAERS Safety Report 24932852 (Version 1)
Quarter: 2025Q1

REPORT INFORMATION
  Report Type: Spontaneous
  Country: CH (occurrence: CH)
  Receive Date: 20250205
  Receipt Date: 20250205
  Transmission Date: 20250409
  Serious: Yes (Hospitalization, Other)
  Sender: STRIDES
  Company Number: None

PATIENT
  Age: 69 Year
  Sex: Female

DRUGS (6)
  1. PREDNISOLONE [Suspect]
     Active Substance: PREDNISOLONE
     Indication: Lung consolidation
     Route: 065
     Dates: start: 202009, end: 2020
  2. PREDNISOLONE [Suspect]
     Active Substance: PREDNISOLONE
     Route: 065
     Dates: start: 2020, end: 202012
  3. DOXYCYCLINE [Suspect]
     Active Substance: DOXYCYCLINE
     Indication: Antibiotic therapy
     Route: 065
     Dates: start: 202011
  4. HYDROXYCHLOROQUINE [Suspect]
     Active Substance: HYDROXYCHLOROQUINE
     Indication: Antibiotic therapy
     Route: 065
     Dates: start: 202011
  5. COTRIMOXAZOLE [Suspect]
     Active Substance: SULFAMETHOXAZOLE\TRIMETHOPRIM
     Indication: Antibiotic therapy
     Route: 065
     Dates: start: 202011
  6. CEFTRIAXONE [Suspect]
     Active Substance: CEFTRIAXONE
     Indication: Antibiotic therapy
     Route: 065
     Dates: start: 202011

REACTIONS (8)
  - Bronchopleural fistula [Unknown]
  - B-cell lymphoma [Unknown]
  - Lymphoma [Unknown]
  - Whipple^s disease [Unknown]
  - Drug ineffective [Unknown]
  - Gastrointestinal disorder [Unknown]
  - Polymerase chain reaction negative [Unknown]
  - False negative investigation result [Unknown]

NARRATIVE: CASE EVENT DATE: 20230301
